FAERS Safety Report 24142213 (Version 4)
Quarter: 2024Q3

REPORT INFORMATION
  Report Type: Spontaneous
  Country: ES (occurrence: ES)
  Receive Date: 20240726
  Receipt Date: 20240920
  Transmission Date: 20241017
  Serious: Yes (Other)
  Sender: MYLAN
  Company Number: ES-MYLANLABS-2024M1068747

PATIENT
  Sex: Male

DRUGS (7)
  1. NEURONTIN [Suspect]
     Active Substance: GABAPENTIN
     Indication: Bipolar disorder
     Dosage: 400 MILLIGRAM, TID (1200 MG DIVIDED INTO 3 DOSES/DAY)
     Route: 065
     Dates: start: 2002
  2. RISPERDAL [Concomitant]
     Active Substance: RISPERIDONE
     Dosage: 3 MILLIGRAM
     Route: 065
  3. LORMETAZEPAM [Concomitant]
     Active Substance: LORMETAZEPAM
     Dosage: 2 MILLIGRAM
     Route: 065
  4. CLOTHIAPINE [Concomitant]
     Active Substance: CLOTHIAPINE
     Dosage: UNK
     Route: 065
     Dates: start: 200609
  5. AKINETON [Concomitant]
     Active Substance: BIPERIDEN HYDROCHLORIDE
     Indication: Dysphagia
     Dosage: UNK
     Route: 042
     Dates: start: 2006
  6. FLUVOXAMINE MALEATE [Concomitant]
     Active Substance: FLUVOXAMINE MALEATE
     Dosage: UNK
     Route: 065
     Dates: start: 200609
  7. Prisdal [Concomitant]
     Dosage: UNK
     Route: 065
     Dates: start: 200609

REACTIONS (2)
  - Bipolar disorder [Recovered/Resolved]
  - Off label use [Unknown]

NARRATIVE: CASE EVENT DATE: 20020101
